FAERS Safety Report 13863691 (Version 4)
Quarter: 2017Q4

REPORT INFORMATION
  Report Type: Report from Study
  Country: ZA (occurrence: ZA)
  Receive Date: 20170814
  Receipt Date: 20171105
  Transmission Date: 20180320
  Serious: Yes (Hospitalization)
  Sender: FDA-Public Use
  Company Number: PHHY2017ZA116863

PATIENT
  Sex: Female

DRUGS (2)
  1. NEXIUM [Concomitant]
     Active Substance: ESOMEPRAZOLE MAGNESIUM
     Indication: PRODUCT USED FOR UNKNOWN INDICATION
     Dosage: 40 MG, QD
     Route: 065
  2. EXJADE [Suspect]
     Active Substance: DEFERASIROX
     Indication: MYELODYSPLASTIC SYNDROME
     Dosage: 500 MG, QD
     Route: 065
     Dates: end: 20171013

REACTIONS (13)
  - Pneumonia [Unknown]
  - Vomiting [Not Recovered/Not Resolved]
  - Pseudomonas infection [Unknown]
  - Gastric disorder [Not Recovered/Not Resolved]
  - Dyspnoea [Unknown]
  - Thrombosis [Unknown]
  - Chest discomfort [Unknown]
  - Abdominal pain upper [Not Recovered/Not Resolved]
  - Fluid retention [Unknown]
  - Staphylococcal infection [Unknown]
  - Lower respiratory tract infection [Unknown]
  - Hyperpyrexia [Unknown]
  - Inappropriate schedule of drug administration [Unknown]
